FAERS Safety Report 8762684 (Version 2)
Quarter: 2012Q4

REPORT INFORMATION
  Report Type: 
  Country: ZA (occurrence: ZA)
  Receive Date: 20120831
  Receipt Date: 20120907
  Transmission Date: 20130627
  Serious: Yes (Hospitalization)
  Sender: FDA-Public Use
  Company Number: ZA-B.I. PHARMACEUTICALS,INC./RIDGEFIELD-2012-AP-00696ZA

PATIENT
  Age: 54 Year
  Sex: Male

DRUGS (7)
  1. PRADAXA [Suspect]
     Indication: THROMBOSIS PROPHYLAXIS
     Dosage: 220 mg
     Dates: start: 20120805, end: 20120809
  2. GLUCOPHAGE [Concomitant]
  3. TRITACE [Concomitant]
  4. LIPITOR [Concomitant]
  5. ZIAK [Concomitant]
  6. FOLIC ACID [Concomitant]
  7. ACTRAPHANE [Concomitant]

REACTIONS (3)
  - Acute myocardial infarction [Unknown]
  - Hypersensitivity [Recovered/Resolved]
  - Swelling [Recovered/Resolved]
